FAERS Safety Report 10683954 (Version 5)
Quarter: 2019Q1

REPORT INFORMATION
  Report Type: Report from Study
  Country: US (occurrence: US)
  Receive Date: 20141230
  Receipt Date: 20190315
  Transmission Date: 20190417
  Serious: Yes (Death, Hospitalization, Other)
  Sender: FDA-Public Use
  Company Number: US-ACTELION-A-NJ2014-110260

PATIENT
  Age: 59 Year
  Sex: Female
  Weight: 88.44 kg

DRUGS (6)
  1. SILDENAFIL. [Concomitant]
     Active Substance: SILDENAFIL
  2. TRACLEER [Suspect]
     Active Substance: BOSENTAN
     Indication: PULMONARY ARTERIAL HYPERTENSION
     Dosage: 125 MG, BID
     Route: 048
  3. TYVASO [Concomitant]
     Active Substance: TREPROSTINIL
  4. ELIQUIS [Concomitant]
     Active Substance: APIXABAN
  5. COUMADIN [Concomitant]
     Active Substance: WARFARIN SODIUM
  6. ADEMPAS [Concomitant]
     Active Substance: RIOCIGUAT

REACTIONS (12)
  - Road traffic accident [Unknown]
  - Death [Fatal]
  - Craniocerebral injury [Unknown]
  - Tooth extraction [Unknown]
  - Obstructive airways disorder [Unknown]
  - Intracranial aneurysm [Unknown]
  - Respiratory failure [Unknown]
  - Cough [Unknown]
  - Osteoarthritis [Unknown]
  - Brain injury [Unknown]
  - Cardiac failure [Unknown]
  - Intervertebral disc protrusion [Unknown]

NARRATIVE: CASE EVENT DATE: 201708
